FAERS Safety Report 10626321 (Version 1)
Quarter: 2014Q4

REPORT INFORMATION
  Report Type: Spontaneous
  Country: US (occurrence: None)
  Receive Date: 20141121
  Receipt Date: 20141121
  Transmission Date: 20150529
  Serious: No
  Sender: FDA-Public Use
  Company Number: 163-10004-14082325

PATIENT
  Age: 68 Year
  Sex: Male

DRUGS (17)
  1. BD PEN NEEDLE [Concomitant]
  2. HYDROCONDE/ACETAMINOPHEN(REMEDINE) [Concomitant]
  3. LEVEMIR [Concomitant]
     Active Substance: INSULIN DETEMIR
  4. GLUCAGON(GLUCAGON) [Concomitant]
  5. OTEZLA [Suspect]
     Active Substance: APREMILAST
     Indication: PSORIATIC ARTHROPATHY
     Route: 048
     Dates: start: 20140505, end: 201407
  6. DOXYCYCLINE HYCLATE. [Concomitant]
     Active Substance: DOXYCYCLINE HYCLATE
  7. XELJANZ(TOFACITINIB CITRATE) [Concomitant]
  8. NOVOLOG FLEXPEN(INJECTION) [Concomitant]
  9. FUROSEMIDE(FUROSEMIDE) [Concomitant]
  10. ULORIC(FEBUXOSTAT) [Concomitant]
  11. METOPROLOL TARTTE(METOPROLOL TARTRATE) [Concomitant]
  12. ENEBREL SURECLICK (INJECTION) [Concomitant]
  13. AMLODIPINE BESYLATE(AMLODIPINE BESILATE) [Concomitant]
  14. KLOR-CON(POTASSIUM CHLORIDE) [Concomitant]
  15. ZOLPIDEM(ZOLPIDEM) [Concomitant]
  16. COMBIVENT [Concomitant]
     Active Substance: ALBUTEROL SULFATE\IPRATROPIUM BROMIDE
  17. FLUTICASONE(GLUTICASONE) [Concomitant]

REACTIONS (1)
  - Drug ineffective [None]

NARRATIVE: CASE EVENT DATE: 201407
